FAERS Safety Report 9069744 (Version 3)
Quarter: 2013Q3

REPORT INFORMATION
  Report Type: Report from Study
  Country: DE (occurrence: DE)
  Receive Date: 20130131
  Receipt Date: 20130724
  Transmission Date: 20140515
  Serious: Yes (Hospitalization)
  Sender: FDA-Public Use
  Company Number: DE-ABBOTT-13P-062-1042133-00

PATIENT
  Age: 46 Year
  Sex: Male
  Weight: 75 kg

DRUGS (2)
  1. HUMIRA [Suspect]
     Indication: CROHN^S DISEASE
     Route: 058
     Dates: start: 20101203, end: 201201
  2. AZATHIOPRIN [Suspect]
     Indication: CROHN^S DISEASE

REACTIONS (4)
  - Positron emission tomogram abnormal [Not Recovered/Not Resolved]
  - Large intestinal stenosis [Unknown]
  - Chronic obstructive pulmonary disease [Recovered/Resolved]
  - Lung neoplasm malignant [Recovered/Resolved]
